FAERS Safety Report 8247623-X (Version None)
Quarter: 2012Q1

REPORT INFORMATION
  Report Type: 
  Country: None (occurrence: None)
  Receive Date: 20120330
  Receipt Date: 20120328
  Transmission Date: 20120608
  Serious: Yes (Other)
  Sender: FDA-Public Use
  Company Number: IT-PFIZER INC-2012080089

PATIENT
  Age: 37 Year
  Sex: Male

DRUGS (3)
  1. XANAX [Suspect]
     Indication: DEPRESSION
     Dosage: 5 MG DAILY
     Dates: start: 20120312, end: 20120312
  2. SPASMOMEN [Concomitant]
     Dosage: UNK
  3. DISSENTEN [Concomitant]
     Dosage: UNK

REACTIONS (4)
  - HYPOTENSION [None]
  - INTENTIONAL SELF-INJURY [None]
  - LOSS OF CONSCIOUSNESS [None]
  - INTENTIONAL OVERDOSE [None]
